FAERS Safety Report 6305907-6 (Version None)
Quarter: 2009Q3

REPORT INFORMATION
  Report Type: 
  Country: None (occurrence: None)
  Receive Date: 20090812
  Receipt Date: 20090731
  Transmission Date: 20100115
  Serious: Yes (Hospitalization)
  Sender: FDA-Public Use
  Company Number: JP-PFIZER INC-2009250360

PATIENT
  Age: 69 Year

DRUGS (4)
  1. ALDACTONE [Suspect]
     Indication: CARDIAC FAILURE
     Dosage: UNK
     Route: 048
     Dates: start: 20090413, end: 20090519
  2. LASIX [Concomitant]
     Route: 048
     Dates: start: 20090413, end: 20090519
  3. WARFARIN [Concomitant]
     Route: 048
     Dates: start: 20090413, end: 20090703
  4. PARIET [Concomitant]
     Route: 048
     Dates: start: 20090413, end: 20090520

REACTIONS (1)
  - ACUTE GENERALISED EXANTHEMATOUS PUSTULOSIS [None]
